FAERS Safety Report 4518139-9 (Version None)
Quarter: 2004Q4

REPORT INFORMATION
  Report Type: 
  Country: None (occurrence: None)
  Receive Date: 20041130
  Receipt Date: 20041111
  Transmission Date: 20050328
  Serious: No
  Sender: FDA-Public Use
  Company Number: A06200400306

PATIENT
  Age: 30 Year
  Sex: Female

DRUGS (2)
  1. XATRAL - (ALFUZOSIN) - TABLET - 10 MG [Suspect]
     Indication: BLADDER DISORDER
     Dosage: 10 MG OD ORAL
     Route: 048
     Dates: start: 20000101, end: 20040101
  2. XATRAL - (ALFUZOSIN) - TABLET - 10 MG [Suspect]
     Indication: MUSCLE DISORDER
     Dosage: 10 MG OD ORAL
     Route: 048
     Dates: start: 20000101, end: 20040101

REACTIONS (5)
  - ABORTION INDUCED [None]
  - ABORTION SPONTANEOUS [None]
  - DRUG EXPOSURE DURING PREGNANCY [None]
  - FOETAL MALFORMATION [None]
  - PREGNANCY [None]
